FAERS Safety Report 6423451-2 (Version None)
Quarter: 2009Q4

REPORT INFORMATION
  Report Type: 
  Country: None (occurrence: None)
  Receive Date: 20091102
  Receipt Date: 20091022
  Transmission Date: 20100525
  Serious: Yes (Hospitalization)
  Sender: FDA-Public Use
  Company Number: B0599381A

PATIENT
  Age: 35 Year
  Sex: Female

DRUGS (6)
  1. LAMIVUDINE [Suspect]
     Indication: HIV INFECTION
     Dates: start: 20040401
  2. ZIDOVUDINE [Suspect]
     Indication: HIV INFECTION
     Dates: start: 20040401
  3. DIDANOSINE [Suspect]
     Indication: HIV INFECTION
     Dates: start: 20040401
  4. NEVIRAPINE [Suspect]
     Indication: HIV INFECTION
     Dates: start: 20040401
  5. HYDROXYCHLOROQUINE SULFATE [Suspect]
     Dosage: 6.5MGKD PER DAY
  6. BETAMETHASONE DIPROPIONATE [Suspect]

REACTIONS (6)
  - ALOPECIA [None]
  - CUTANEOUS LUPUS ERYTHEMATOSUS [None]
  - DRUG EXPOSURE DURING PREGNANCY [None]
  - IMMUNE RECONSTITUTION SYNDROME [None]
  - PIGMENTATION DISORDER [None]
  - SKIN LESION [None]
